FAERS Safety Report 13820719 (Version 1)
Quarter: 2017Q3

REPORT INFORMATION
  Report Type: Spontaneous
  Country: US (occurrence: US)
  Receive Date: 20170801
  Receipt Date: 20170801
  Transmission Date: 20171127
  Serious: Yes (Other)
  Sender: FDA-Public Use
  Company Number: PHHY2017US109308

PATIENT
  Age: 51 Year
  Sex: Male

DRUGS (3)
  1. PREDNISONE. [Suspect]
     Active Substance: PREDNISONE
     Indication: PACHYMENINGITIS
     Dosage: 40 MG, QD
     Route: 065
  2. PREDNISONE. [Suspect]
     Active Substance: PREDNISONE
     Dosage: 40 MG, QD
     Route: 065
  3. PREDNISONE. [Suspect]
     Active Substance: PREDNISONE
     Dosage: DOSE REDUCED, 2-3 MONTHS LATER
     Route: 065

REACTIONS (5)
  - Pachymeningitis [Unknown]
  - Weight increased [Unknown]
  - Folliculitis [Unknown]
  - Disease progression [Unknown]
  - Depression [Unknown]
